FAERS Safety Report 20176173 (Version 1)
Quarter: 2021Q4

REPORT INFORMATION
  Report Type: Spontaneous
  Country: US (occurrence: None)
  Receive Date: 20211213
  Receipt Date: 20211213
  Transmission Date: 20220304
  Serious: Yes (Death)
  Sender: FDA-Public Use
  Company Number: None

PATIENT
  Age: 68 Year
  Sex: Male

DRUGS (9)
  1. ABIRATERONE [Suspect]
     Active Substance: ABIRATERONE
     Indication: Prostate cancer
     Dosage: OTHER QUANTITY : 2 TABLETS;?FREQUENCY : DAILY;?
     Route: 048
     Dates: start: 20200310
  2. PREDNISONE [Suspect]
     Active Substance: PREDNISONE
  3. hydrocodone/acetaminophen 5/325mg [Concomitant]
  4. APPLE CIDER VINEGAR [Concomitant]
     Active Substance: APPLE CIDER VINEGAR
  5. vitamin D 1000 unit [Concomitant]
  6. Vitamin K 100mcg [Concomitant]
  7. TRAMADOL [Concomitant]
     Active Substance: TRAMADOL
  8. morphine sulfate 15mg imm release [Concomitant]
  9. oxycontin er 10mg [Concomitant]

REACTIONS (2)
  - Prostate cancer metastatic [None]
  - COVID-19 [None]

NARRATIVE: CASE EVENT DATE: 20211026
